FAERS Safety Report 13641899 (Version 1)
Quarter: 2017Q2

REPORT INFORMATION
  Report Type: Spontaneous
  Country: US (occurrence: US)
  Receive Date: 20170612
  Receipt Date: 20170612
  Transmission Date: 20170830
  Serious: No
  Sender: FDA-Public Use
  Company Number: US-PFIZER INC-2017256659

PATIENT
  Age: 19 Year
  Sex: Female
  Weight: 74.84 kg

DRUGS (1)
  1. EUCRISA [Suspect]
     Active Substance: CRISABOROLE
     Indication: ECZEMA
     Dosage: VERY LITTLE BIT SIZE OF GRAIN OF RICE APPLY TO ECZEMA MORNING AND NIGHT
     Route: 061
     Dates: start: 20170602

REACTIONS (2)
  - Application site pruritus [Recovered/Resolved]
  - Application site pain [Recovered/Resolved]

NARRATIVE: CASE EVENT DATE: 20170602
